FAERS Safety Report 7617003-6 (Version None)
Quarter: 2011Q3

REPORT INFORMATION
  Report Type: 
  Country: None (occurrence: None)
  Receive Date: 20110718
  Receipt Date: 20090827
  Transmission Date: 20111222
  Serious: No
  Sender: FDA-Public Use
  Company Number: 2009BI027539

PATIENT
  Sex: Female

DRUGS (1)
  1. TYSABRI [Suspect]
     Indication: MULTIPLE SCLEROSIS
     Route: 042
     Dates: start: 20090127

REACTIONS (10)
  - FATIGUE [None]
  - WEIGHT DECREASED [None]
  - DEPRESSION [None]
  - IRRITABILITY [None]
  - PANIC ATTACK [None]
  - DECREASED APPETITE [None]
  - ANXIETY [None]
  - AMNESIA [None]
  - GAIT DISTURBANCE [None]
  - HYPOAESTHESIA [None]
